FAERS Safety Report 5850210-1 (Version None)
Quarter: 2008Q3

REPORT INFORMATION
  Report Type: 
  Country: None (occurrence: None)
  Receive Date: 20080731
  Receipt Date: 20080410
  Transmission Date: 20090109
  Serious: No
  Sender: FDA-Public Use
  Company Number: US200804003121

PATIENT
  Age: 68 Year
  Sex: Female
  Weight: 93.9 kg

DRUGS (3)
  1. BYETTA [Suspect]
     Indication: TYPE 2 DIABETES MELLITUS
     Dosage: 5 UG, 2/D, SUBCUTANEOUS
     Route: 058
     Dates: start: 20070830, end: 20070101
  2. GLIPIZIDE [Concomitant]
  3. ACTOS [Concomitant]

REACTIONS (4)
  - BLOOD GLUCOSE DECREASED [None]
  - HERPES ZOSTER [None]
  - NAUSEA [None]
  - WEIGHT INCREASED [None]
